FAERS Safety Report 8269243-3 (Version None)
Quarter: 2012Q1

REPORT INFORMATION
  Report Type: 
  Country: None (occurrence: None)
  Receive Date: 20120327
  Receipt Date: 20090814
  Transmission Date: 20120608
  Serious: Yes (Hospitalization)
  Sender: FDA-Public Use
  Company Number: PHEH2009US05742

PATIENT
  Age: 47 Year
  Sex: Female
  Weight: 55 kg

DRUGS (2)
  1. LEVAQUIN [Concomitant]
  2. GLEEVEC [Suspect]
     Indication: PULMONARY FIBROSIS
     Dosage: 400 MG, QD, ORAL MEDICATION HELD 400 MG, QD, ORAL
     Route: 048
     Dates: start: 20090422, end: 20090516

REACTIONS (7)
  - VOMITING [None]
  - DIARRHOEA [None]
  - PNEUMONIA [None]
  - BLOOD POTASSIUM DECREASED [None]
  - RESPIRATORY TRACT INFECTION [None]
  - NAUSEA [None]
  - DEHYDRATION [None]
